FAERS Safety Report 9745361 (Version 1)
Quarter: 2013Q4

REPORT INFORMATION
  Report Type: Spontaneous
  Country: US (occurrence: None)
  Receive Date: 20131206
  Receipt Date: 20131206
  Transmission Date: 20140711
  Serious: Yes (Disabling)
  Sender: FDA-Public Use
  Company Number: None

PATIENT
  Age: 47 Year
  Sex: Male
  Weight: 79.38 kg

DRUGS (1)
  1. LABRIUM [Suspect]
     Indication: MALARIA PROPHYLAXIS
     Dosage: 5 YEARS 91-96
     Route: 048

REACTIONS (8)
  - Dizziness [None]
  - Balance disorder [None]
  - Nausea [None]
  - Vertigo [None]
  - Anxiety [None]
  - Panic disorder [None]
  - Peroneal nerve palsy [None]
  - Depression [None]
